FAERS Safety Report 5700408-8 (Version None)
Quarter: 2008Q2

REPORT INFORMATION
  Report Type: 
  Country: None (occurrence: None)
  Receive Date: 20080410
  Receipt Date: 20080328
  Transmission Date: 20081010
  Serious: Yes (Life-Threatening)
  Sender: FDA-Public Use
  Company Number: FR-PFIZER INC-2008024883

PATIENT
  Sex: Male

DRUGS (14)
  1. VFEND [Suspect]
     Indication: CANDIDIASIS
     Route: 042
     Dates: start: 20071202, end: 20071206
  2. FLAGYL [Suspect]
     Route: 048
  3. GENTAMICIN [Concomitant]
  4. LEVOFLOXACIN [Concomitant]
  5. NOREPINEPHRINE BITARTRATE [Concomitant]
  6. HYDROCORTISONE HEMISUCCINATE [Concomitant]
  7. MIDAZOLAM HCL [Concomitant]
  8. ACETYLSALICYLATE LYSINE [Concomitant]
  9. MORPHINE SULFATE [Concomitant]
  10. PANTOPRAZOLE SODIUM [Concomitant]
     Route: 048
  11. VANCOMYCIN [Concomitant]
  12. AMIKACIN [Concomitant]
  13. NOREPINEPHRINE [Concomitant]
     Dates: end: 20071205
  14. LEVOFLOXACIN [Concomitant]

REACTIONS (1)
  - ATRIOVENTRICULAR BLOCK [None]
